FAERS Safety Report 14541609 (Version 1)
Quarter: 2018Q1

REPORT INFORMATION
  Report Type: Spontaneous
  Country: RO (occurrence: RO)
  Receive Date: 20180216
  Receipt Date: 20180216
  Transmission Date: 20180509
  Serious: Yes (Hospitalization)
  Sender: FDA-Public Use
  Company Number: RO-AMGEN-ROUSP2017164710

PATIENT
  Sex: Female
  Weight: 75 kg

DRUGS (1)
  1. PROLIA [Suspect]
     Active Substance: DENOSUMAB
     Indication: OSTEOPOROSIS
     Dosage: 60 MG/ML, Q6MO
     Route: 058

REACTIONS (4)
  - Motor dysfunction [Unknown]
  - Blood glucose increased [Unknown]
  - Dizziness [Unknown]
  - Haematuria [Unknown]

NARRATIVE: CASE EVENT DATE: 2018
